FAERS Safety Report 7204873-9 (Version None)
Quarter: 2010Q4

REPORT INFORMATION
  Report Type: 
  Country: None (occurrence: None)
  Receive Date: 20101230
  Receipt Date: 20101217
  Transmission Date: 20110411
  Serious: Yes (Hospitalization)
  Sender: FDA-Public Use
  Company Number: IT-JNJFOC-20101207380

PATIENT
  Sex: Female

DRUGS (3)
  1. IBUPROFEN [Suspect]
     Indication: ARTHRALGIA
     Route: 048
  2. METHOTREXATE [Suspect]
     Indication: RHEUMATOID ARTHRITIS
     Route: 030
  3. METHYLPREDNISOLONE [Concomitant]

REACTIONS (2)
  - LEUKOPENIA [None]
  - PLATELET COUNT DECREASED [None]
